FAERS Safety Report 7227542-8 (Version None)
Quarter: 2011Q1

REPORT INFORMATION
  Report Type: 
  Country: None (occurrence: None)
  Receive Date: 20110105
  Receipt Date: 20101222
  Transmission Date: 20110831
  Serious: Yes (Hospitalization)
  Sender: FDA-Public Use
  Company Number: 024348

PATIENT
  Sex: Male
  Weight: 51.9 kg

DRUGS (2)
  1. LEVETIRACETAM [Suspect]
     Indication: EPILEPSY
     Dosage: (1500 MG BID ORAL)
     Route: 048
     Dates: start: 20061206
  2. TOPIRAMATE [Concomitant]

REACTIONS (1)
  - ANAEMIA [None]
